FAERS Safety Report 14578208 (Version 1)
Quarter: 2018Q1

REPORT INFORMATION
  Report Type: Spontaneous
  Country: US (occurrence: US)
  Receive Date: 20180226
  Receipt Date: 20180226
  Transmission Date: 20180509
  Serious: Yes (Life-Threatening)
  Sender: FDA-Public Use
  Company Number: None

PATIENT
  Age: 49 Year
  Sex: Male

DRUGS (2)
  1. METOPROLOL. [Suspect]
     Active Substance: METOPROLOL
     Indication: HYPERTENSION
     Route: 048
     Dates: start: 20160601, end: 20180122
  2. LOSARTAN. [Suspect]
     Active Substance: LOSARTAN
     Indication: HYPERTENSION
     Route: 048
     Dates: start: 20140703, end: 20180121

REACTIONS (7)
  - Urticaria [None]
  - Pruritus [None]
  - Angioedema [None]
  - Anaphylactic reaction [None]
  - Wheezing [None]
  - Drug resistance [None]
  - Cough [None]

NARRATIVE: CASE EVENT DATE: 20180121
